FAERS Safety Report 7217579-7 (Version None)
Quarter: 2011Q1

REPORT INFORMATION
  Report Type: 
  Country: None (occurrence: None)
  Receive Date: 20110110
  Receipt Date: 20090915
  Transmission Date: 20110831
  Serious: Yes (Hospitalization)
  Sender: FDA-Public Use
  Company Number: CN-ROCHE-654012

PATIENT
  Sex: Male
  Weight: 50 kg

DRUGS (8)
  1. TACROLIMUS [Suspect]
     Route: 048
     Dates: start: 20090528, end: 20090602
  2. PREDNISONE [Suspect]
     Indication: RENAL TRANSPLANT
     Route: 048
     Dates: start: 20090227
  3. TACROLIMUS [Suspect]
     Route: 048
     Dates: start: 20090504, end: 20090515
  4. MYCOPHENOLATE MOFETIL [Suspect]
     Indication: RENAL TRANSPLANT
     Route: 048
     Dates: start: 20090227
  5. TACROLIMUS [Suspect]
     Route: 048
     Dates: start: 20090515, end: 20090527
  6. TACROLIMUS [Suspect]
     Indication: RENAL TRANSPLANT
     Route: 048
     Dates: start: 20090228
  7. PREDNISONE [Suspect]
     Route: 048
     Dates: start: 20090504, end: 20090602
  8. TACROLIMUS [Suspect]
     Route: 048
     Dates: start: 20090527, end: 20090528

REACTIONS (1)
  - TRANSPLANT REJECTION [None]
